FAERS Safety Report 18294524 (Version 4)
Quarter: 2021Q2

REPORT INFORMATION
  Report Type: Report from Study
  Country: DE (occurrence: DE)
  Receive Date: 20200922
  Receipt Date: 20210402
  Transmission Date: 20210717
  Serious: Yes (Death, Life-Threatening, Hospitalization)
  Sender: FDA-Public Use
  Company Number: DE-ROCHE-2680041

PATIENT
  Sex: Male
  Weight: 53 kg

DRUGS (9)
  1. CYCLOPHOSPHAMIDE. [Suspect]
     Active Substance: CYCLOPHOSPHAMIDE
     Indication: POST TRANSPLANT LYMPHOPROLIFERATIVE DISORDER
     Dosage: MOST RECENT DOSE: 27/JAN/2020
     Route: 042
     Dates: start: 20200103
  2. RITUXIMAB. [Suspect]
     Active Substance: RITUXIMAB
     Indication: POST TRANSPLANT LYMPHOPROLIFERATIVE DISORDER
     Dosage: MOST RECENT DOSE: 23/JAN/2020
     Route: 058
     Dates: start: 20191210
  3. VINCRISTINE [Suspect]
     Active Substance: VINCRISTINE
     Indication: POST TRANSPLANT LYMPHOPROLIFERATIVE DISORDER
     Dosage: MOST RECENT DOSE: 27/JAN/2020
     Route: 042
     Dates: start: 20200103
  4. PREDNISONE. [Suspect]
     Active Substance: PREDNISONE
     Indication: POST TRANSPLANT LYMPHOPROLIFERATIVE DISORDER
     Dosage: MOST RECENT DOSE: 27/JAN/2020
     Route: 048
     Dates: start: 20200103
  5. RITUXIMAB. [Suspect]
     Active Substance: RITUXIMAB
     Indication: POST TRANSPLANT LYMPHOPROLIFERATIVE DISORDER
     Dosage: MOST RECENT DOSE: 27/JAN/2020
     Route: 041
     Dates: start: 20200103
  6. CYCLOSPORIN A [Concomitant]
     Active Substance: CYCLOSPORINE
  7. AZATHIOPRINE. [Concomitant]
     Active Substance: AZATHIOPRINE
  8. ADRIAMYCIN [Suspect]
     Active Substance: DOXORUBICIN HYDROCHLORIDE
     Indication: POST TRANSPLANT LYMPHOPROLIFERATIVE DISORDER
     Dosage: MOST RECENT DOSE: 27/JAN/2020
     Route: 042
     Dates: start: 20200103
  9. PROGRAF [Concomitant]
     Active Substance: TACROLIMUS
     Dosage: 8?12 MG
     Dates: start: 2009

REACTIONS (4)
  - Liver abscess [Fatal]
  - Sepsis [Recovered/Resolved]
  - Anuria [Recovered/Resolved]
  - Febrile neutropenia [Recovered/Resolved]

NARRATIVE: CASE EVENT DATE: 20191218
